FAERS Safety Report 9697532 (Version 1)
Quarter: 2013Q4

REPORT INFORMATION
  Report Type: Spontaneous
  Country: US (occurrence: None)
  Receive Date: 20131119
  Receipt Date: 20131119
  Transmission Date: 20140711
  Serious: Yes (Hospitalization)
  Sender: FDA-Public Use
  Company Number: None

PATIENT
  Age: 56 Year
  Sex: Male
  Weight: 120.2 kg

DRUGS (1)
  1. ULORIC [Suspect]
     Indication: GOUT
     Dosage: 40 MG ONE 40 MG TWICE DAILY BY MOUTH
     Route: 048
     Dates: start: 20130812, end: 20130815

REACTIONS (4)
  - Hallucination, visual [None]
  - Thinking abnormal [None]
  - Road traffic accident [None]
  - Poisoning [None]
